FAERS Safety Report 22303434 (Version 1)
Quarter: 2023Q2

REPORT INFORMATION
  Report Type: Spontaneous
  Country: US (occurrence: US)
  Receive Date: 20230510
  Receipt Date: 20230510
  Transmission Date: 20230722
  Serious: Yes (Other)
  Sender: FDA-Public Use
  Company Number: US-AMGEN-USASP2023078392

PATIENT
  Age: 65 Year
  Sex: Female

DRUGS (23)
  1. LUMAKRAS [Suspect]
     Active Substance: SOTORASIB
     Indication: Lung neoplasm malignant
     Dosage: 960 MILLIGRAM, QD (WITH OR WITHOUR FOOD)
     Route: 048
     Dates: end: 2023
  2. DEXAMETHASONE [Concomitant]
     Active Substance: DEXAMETHASONE
     Dosage: 6 MILLIGRAM
  3. WELLBUTRIN [Concomitant]
     Active Substance: BUPROPION HYDROCHLORIDE
  4. IBUPROFEN [Concomitant]
     Active Substance: IBUPROFEN
     Dosage: 800 MILLIGRAM
  5. CLONIDINE HYDROCHLORIDE [Concomitant]
     Active Substance: CLONIDINE HYDROCHLORIDE
     Dosage: 0.3 MILLIGRAM
  6. CYCLOBENZAPRINE [Concomitant]
     Active Substance: CYCLOBENZAPRINE
     Dosage: 10 MILLIGRAM
  7. DIAZEPAM [Concomitant]
     Active Substance: DIAZEPAM
  8. FOLIC ACID [Concomitant]
     Active Substance: FOLIC ACID
  9. Geritol [Concomitant]
  10. GINGER [Concomitant]
     Active Substance: GINGER
  11. HYDROCHLOROTHIAZIDE [Concomitant]
     Active Substance: HYDROCHLOROTHIAZIDE
  12. LICORICE [Concomitant]
     Active Substance: LICORICE
  13. LORATADINE [Concomitant]
     Active Substance: LORATADINE
  14. LUTEIN [Concomitant]
     Active Substance: LUTEIN
     Dosage: 40 MILLIGRAM
  15. PREDNISONE [Concomitant]
     Active Substance: PREDNISONE
  16. PROAIR DIGIHALER [Concomitant]
     Active Substance: ALBUTEROL SULFATE
  17. PROCHLORPERAZINE MALEATE [Concomitant]
     Active Substance: PROCHLORPERAZINE MALEATE
     Dosage: 10 MILLIGRAM
  18. SYMBICORT [Concomitant]
     Active Substance: BUDESONIDE\FORMOTEROL FUMARATE DIHYDRATE
  19. TRAMADOL HCL [Concomitant]
     Active Substance: TRAMADOL HYDROCHLORIDE
  20. HERBALS\TURMERIC [Concomitant]
     Active Substance: HERBALS\TURMERIC
     Dosage: 500 MILLIGRAM
  21. VITAMIN C [Concomitant]
     Active Substance: ASCORBIC ACID
  22. VITAMIN D [Concomitant]
     Active Substance: VITAMIN D NOS
  23. ZEAXANTHIN [Concomitant]
     Active Substance: ZEAXANTHIN

REACTIONS (1)
  - Cardiac failure [Not Recovered/Not Resolved]

NARRATIVE: CASE EVENT DATE: 20230101
